FAERS Safety Report 11151329 (Version 3)
Quarter: 2015Q3

REPORT INFORMATION
  Report Type: Spontaneous
  Country: GB (occurrence: GB)
  Receive Date: 20150601
  Receipt Date: 20150729
  Transmission Date: 20151125
  Serious: Yes (Hospitalization, Other)
  Sender: FDA-Public Use
  Company Number: GB-JNJFOC-20150513771

PATIENT
  Age: 52 Year
  Sex: Male

DRUGS (1)
  1. RISPERDAL [Suspect]
     Active Substance: RISPERIDONE
     Indication: PRODUCT USED FOR UNKNOWN INDICATION
     Route: 048

REACTIONS (10)
  - Suicidal ideation [Recovering/Resolving]
  - Tremor [Recovering/Resolving]
  - Weight increased [Recovering/Resolving]
  - Mitochondrial cytopathy [Unknown]
  - Acidosis [Unknown]
  - Urinary tract infection [Unknown]
  - Sedation [Recovering/Resolving]
  - Bundle branch block left [Unknown]
  - Hepatic enzyme abnormal [Unknown]
  - Encephalopathy [Unknown]
